FAERS Safety Report 5527302-X (Version None)
Quarter: 2007Q4

REPORT INFORMATION
  Report Type: 
  Country: None (occurrence: None)
  Receive Date: 20071128
  Receipt Date: 20071121
  Transmission Date: 20080405
  Serious: Yes (Other)
  Sender: FDA-Public Use
  Company Number: B0490425A

PATIENT
  Age: 58 Year
  Sex: Female
  Weight: 73 kg

DRUGS (7)
  1. VENTOLIN [Suspect]
     Indication: DRUG USE FOR UNKNOWN INDICATION
     Route: 055
  2. NEFOPAM [Concomitant]
     Dosage: 30MG TWICE PER DAY
     Dates: start: 19990101
  3. VENTOLIN [Concomitant]
     Dates: start: 20030101
  4. FLIXOTIDE [Concomitant]
     Dates: start: 20030101
  5. SEREVENT [Concomitant]
     Dates: start: 20070801
  6. BECLOMETHASONE DIPROPIONATE [Concomitant]
     Dates: start: 20010101
  7. CILAZAPRIL [Concomitant]
     Dates: start: 20010101

REACTIONS (4)
  - DYSGEUSIA [None]
  - HAEMATEMESIS [None]
  - MALAISE [None]
  - PHARMACEUTICAL PRODUCT COMPLAINT [None]
